FAERS Safety Report 23394191 (Version 3)
Quarter: 2024Q1

REPORT INFORMATION
  Report Type: Spontaneous
  Country: US (occurrence: US)
  Receive Date: 20240111
  Receipt Date: 20240201
  Transmission Date: 20240410
  Serious: Yes (Hospitalization, Other)
  Sender: FDA-Public Use
  Company Number: US-FreseniusKabi-FK202400543

PATIENT
  Age: 60 Year
  Sex: Male
  Weight: 92.8 kg

DRUGS (24)
  1. MESNA [Suspect]
     Active Substance: MESNA
     Indication: B-cell type acute leukaemia
     Dosage: INJECTION?DURING C1
  2. MESNA [Suspect]
     Active Substance: MESNA
     Dosage: 300 MG/M2 CYCLIC, CYCLE 1, 3, DAYS 1-3
  3. DEXAMETHASONE [Suspect]
     Active Substance: DEXAMETHASONE
     Indication: B-cell type acute leukaemia
     Dosage: 160 MG IN CYCLE 1?TILL 29NOV2023 AT CYCLIC
     Dates: end: 20231129
  4. DEXAMETHASONE [Suspect]
     Active Substance: DEXAMETHASONE
     Dosage: FIRST REGIMEN (ONGOING): 20 MG CYCLIC, CYCLE 1, 3, DAYS 1-4, DAYS 11-14, INTRAVENOUS
     Route: 042
     Dates: start: 20231026
  5. DEXAMETHASONE [Suspect]
     Active Substance: DEXAMETHASONE
     Dosage: SECOND REGIMEN (ONGOING): 20 MG CYCLIC, CYCLE 1, 3, DAYS 1-4, DAYS 11-14, ORAL
     Route: 048
  6. VINCRISTINE SULFATE [Suspect]
     Active Substance: VINCRISTINE SULFATE
     Indication: B-cell type acute leukaemia
     Dosage: 4 MG GIVEN IN CYCLE 1?TOTAL DOSE ADMINISTERED THIS COURSE (DOSE): 0 MG?TILL 02NOV2023 AT CYCLIC
     Dates: end: 20231102
  7. VINCRISTINE SULFATE [Suspect]
     Active Substance: VINCRISTINE SULFATE
     Dosage: ONGOING: 2 MG CYCLIC, CYCLE 1, 3, DAY 1, DAY 8, INTRAVENOUS
     Route: 042
     Dates: start: 20231026
  8. METHYLPREDNISOLONE [Suspect]
     Active Substance: METHYLPREDNISOLONE
     Indication: B-cell type acute leukaemia
     Dosage: TOTAL DOSE ADMINISTERED THIS COURSE (DOSE): 250 MG?FORM OF ADMIN.- TABLET?FROM 28NOV2023 TO 30NOV202
     Dates: start: 20231128, end: 20231130
  9. METHYLPREDNISOLONE [Suspect]
     Active Substance: METHYLPREDNISOLONE
     Dosage: FORM OF ADMINISTRATION: TABLET?50 MG CYCLIC, CYCLE 2, 4, EVERY 12 HRS X 6 DOSES, DAYS 1-3, INTRAVENO
     Route: 042
     Dates: start: 20231128, end: 20231130
  10. CYTARABINE [Suspect]
     Active Substance: CYTARABINE
     Indication: B-cell type acute leukaemia
     Dosage: 4400 MG ADMINISTERED IV ON C2D1-C2D2, INTRAVENOUS?FIRST REGIMEN SINCE 29NOV2023 AT 4400 MG CYCLIC
     Route: 042
     Dates: start: 20231129
  11. CYTARABINE [Suspect]
     Active Substance: CYTARABINE
     Dosage: 100 MG ADMINSTERED IT ON C2D2, INTRATHECAL,  ?SECOND REGIMEN: TILL 30NOV2023, 100 MG CYCLIC, CYCLE 1
     Route: 037
     Dates: end: 20231130
  12. CYTARABINE [Suspect]
     Active Substance: CYTARABINE
     Dosage: FIRST REGIMEN: 500 MG/M2/DOSE CYCLIC, CYCLE 2, 4, EVERY 12 HRS X 4 DOSES, DAYS 2, 3, INTRAVENOUS
     Route: 042
     Dates: start: 20231129, end: 20231130
  13. INOTUZUMAB OZOGAMICIN [Suspect]
     Active Substance: INOTUZUMAB OZOGAMICIN
     Indication: B-cell type acute leukaemia
     Dosage: 1.97 MG TAKEN CYCLE 1, TOTAL DOSE ADMINISTERED THIS COURSE (DOSE): 1.32 MG?FROM 29NOV2023 (BATCH/LOT
     Dates: start: 20231129, end: 20231202
  14. INOTUZUMAB OZOGAMICIN [Suspect]
     Active Substance: INOTUZUMAB OZOGAMICIN
     Dosage: FIRST REGIMEN (BATCH/LOT NUMBER: UNKNOWN):  0.6 MG/M2 CYCLIC(CYCLE 1: 0.6 MG/M2 D2; CYCLE 1:TOTAL 0.
     Route: 042
  15. INOTUZUMAB OZOGAMICIN [Suspect]
     Active Substance: INOTUZUMAB OZOGAMICIN
     Dosage: SECOND REGIMEN (BATCH/LOT NUMBER: UNKNOWN): AT 0.3 MG/M2 CYCLIC (CYCLE 1: 0.3 MG/M2 D8; CYCLE 1:TOTA
     Route: 042
  16. INOTUZUMAB OZOGAMICIN [Suspect]
     Active Substance: INOTUZUMAB OZOGAMICIN
     Dosage: THIRD REGIMEN SINCE 29NOV2023 (BATCH/LOT NUMBER: UNKNOWN) AT 0.3 MG/M2 CYCLIC (CYCLE 2-4: 0.3 MG/M2
     Route: 042
     Dates: start: 20231129
  17. INOTUZUMAB OZOGAMICIN [Suspect]
     Active Substance: INOTUZUMAB OZOGAMICIN
     Dosage: FOURTH REGIMEN (BATCH/LOT NUMBER: UNKNOWN) TILL 02DEC2023 AT 0.3 MG/M2 CYCLIC (CYCLE 2-4: 0.3 MG/M2
     Route: 042
     Dates: end: 20231202
  18. METHOTREXATE SODIUM [Suspect]
     Active Substance: METHOTREXATE SODIUM
     Indication: B-cell type acute leukaemia
     Dosage: 550 MG ADMINISTERED IV ON C2D1, INTRAVENOUS?FIRST REGIMEN FROM 28NOV2023 TO 05DEC2023 AT CYCLIC
     Route: 042
     Dates: start: 20231128, end: 20231205
  19. METHOTREXATE SODIUM [Suspect]
     Active Substance: METHOTREXATE SODIUM
     Dosage: MG ADMINISTERED IT THROUGH OMMAYA RESERVOIR ON C2D8, INTRATHECAL
     Route: 037
     Dates: end: 20231205
  20. METHOTREXATE SODIUM [Suspect]
     Active Substance: METHOTREXATE SODIUM
     Dosage: FIRST REGIMEN: 250 MG/M2 CYCLIC (CYCLE 2, 4, DAY 1), INTRAVENOUS
     Route: 042
     Dates: start: 20231128, end: 20231128
  21. METHOTREXATE SODIUM [Suspect]
     Active Substance: METHOTREXATE SODIUM
     Dosage: SECOND REGIMEN TILL 05DEC2023 TILL 05DEC2023 AT 12 MG CYCLIC (CYCLE 1, 2, DAY 2, DAY 8), INTRATHECAL
     Route: 037
     Dates: end: 20231205
  22. CYCLOPHOSPHAMIDE [Suspect]
     Active Substance: CYCLOPHOSPHAMIDE
     Indication: B-cell type acute leukaemia
     Dosage: PATIENT RECEIVED 1980 MG IN CYCLE 1 BUT NOTHING IN CYCLE 2?TILL 29OCT2023 AT CYCLIC
     Dates: end: 20231029
  23. CYCLOPHOSPHAMIDE [Suspect]
     Active Substance: CYCLOPHOSPHAMIDE
     Dosage: ONGOING, 150 MG/M2 CYCLIC (CYCLE 1, 3, EVERY 12 HRS X 6 DOSES, DAYS 1-3), INTRAVENOUS
     Route: 042
     Dates: start: 20231026
  24. RITUXIMAB [Suspect]
     Active Substance: RITUXIMAB
     Indication: B-cell type acute leukaemia
     Dosage: BATCH/LOT NUMBER: UNKNOWN)375 MG/M2 CYCLIC(CYCLE 1-4; DAY 2, DAY 8) INTRAVENOUS?FORM OF ADMINISTRATI
     Route: 042

REACTIONS (1)
  - Febrile neutropenia [Recovering/Resolving]

NARRATIVE: CASE EVENT DATE: 20231206
